FAERS Safety Report 6270169-5 (Version None)
Quarter: 2009Q3

REPORT INFORMATION
  Report Type: 
  Country: None (occurrence: None)
  Receive Date: 20090716
  Receipt Date: 20090421
  Transmission Date: 20100115
  Serious: No
  Sender: FDA-Public Use
  Company Number: US-BAYER-200918848NA

PATIENT
  Sex: Female
  Weight: 105 kg

DRUGS (1)
  1. MIRENA [Suspect]
     Indication: CONTRACEPTION
     Dosage: CONTINUOUS
     Route: 015
     Dates: start: 20090415

REACTIONS (3)
  - ABDOMINAL PAIN LOWER [None]
  - VAGINAL HAEMORRHAGE [None]
  - WEIGHT INCREASED [None]
